FAERS Safety Report 7291965-1 (Version None)
Quarter: 2011Q1

REPORT INFORMATION
  Report Type: 
  Country: None (occurrence: None)
  Receive Date: 20110214
  Receipt Date: 20110202
  Transmission Date: 20110831
  Serious: Yes (Other)
  Sender: FDA-Public Use
  Company Number: US-BAYER-2010-004977

PATIENT
  Sex: Male

DRUGS (6)
  1. OXYCODONE HCL [Concomitant]
  2. CIPRO [Suspect]
     Indication: PYELONEPHRITIS
     Dosage: 500 MG, UNK
     Route: 048
     Dates: start: 20101220, end: 20101221
  3. CIPRO [Suspect]
     Indication: URINARY TRACT INFECTION
     Dosage: 500 MG, BID
     Route: 048
     Dates: start: 20101105, end: 20101105
  4. LISINOPRIL [Concomitant]
  5. DIAZEPAM [Concomitant]
  6. CIPRO [Suspect]
     Indication: POST PROCEDURAL INFECTION

REACTIONS (2)
  - TACHYCARDIA [None]
  - PALPITATIONS [None]
